FAERS Safety Report 10876625 (Version 1)
Quarter: 2015Q1

REPORT INFORMATION
  Report Type: Report from Study
  Country: US (occurrence: US)
  Receive Date: 20150301
  Receipt Date: 20150301
  Transmission Date: 20150721
  Serious: Yes (Hospitalization, Other)
  Sender: FDA-Public Use
  Company Number: US-BRISTOL-MYERS SQUIBB COMPANY-BMS-2014-004673

PATIENT
  Age: 71 Year
  Sex: Female
  Weight: 54.9 kg

DRUGS (21)
  1. WARFARIN SODIUM. [Suspect]
     Active Substance: WARFARIN SODIUM
     Indication: PULMONARY ARTERIAL HYPERTENSION
     Dosage: 4 MG, QOD
     Route: 065
  2. BONIVA [Concomitant]
     Active Substance: IBANDRONATE SODIUM
  3. FERROUS SULFATE [Concomitant]
     Active Substance: FERROUS SULFATE\FERROUS SULFATE, DRIED
  4. TYLENOL [Concomitant]
     Active Substance: ACETAMINOPHEN
  5. XANAX [Concomitant]
     Active Substance: ALPRAZOLAM
  6. REVATIO [Suspect]
     Active Substance: SILDENAFIL CITRATE
     Indication: PULMONARY ARTERIAL HYPERTENSION
     Dosage: 120 MG, QD
     Route: 048
     Dates: start: 200802
  7. LASIX [Concomitant]
     Active Substance: FUROSEMIDE
  8. FLONASE                            /00908302/ [Concomitant]
  9. KLOR-CON [Concomitant]
     Active Substance: POTASSIUM CHLORIDE
  10. TYVASO [Suspect]
     Active Substance: TREPROSTINIL
     Indication: PULMONARY ARTERIAL HYPERTENSION
     Dosage: 90 ?G, UNK
     Route: 045
     Dates: start: 201005
  11. FLEXERIL [Concomitant]
     Active Substance: CYCLOBENZAPRINE HYDROCHLORIDE
  12. OMEPRAZOLE. [Concomitant]
     Active Substance: OMEPRAZOLE
  13. VALACYCLOVIR [Concomitant]
     Active Substance: VALACYCLOVIR HYDROCHLORIDE
  14. DETROL LA [Concomitant]
     Active Substance: TOLTERODINE TARTRATE
  15. PREDNISONE. [Concomitant]
     Active Substance: PREDNISONE
  16. REQUIP [Concomitant]
     Active Substance: ROPINIROLE HYDROCHLORIDE
  17. RESTORIL [Concomitant]
     Active Substance: TEMAZEPAM
  18. ARICEPT [Concomitant]
     Active Substance: DONEPEZIL HYDROCHLORIDE
  19. DIGOXIN. [Concomitant]
     Active Substance: DIGOXIN
  20. NARCODORM [Concomitant]
  21. PROVENTIL HFA                      /00139501/ [Concomitant]

REACTIONS (13)
  - Muscular weakness [Not Recovered/Not Resolved]
  - Haemorrhage [Recovered/Resolved]
  - Fall [Recovered/Resolved]
  - Oedema peripheral [Recovered/Resolved]
  - Gastrooesophageal reflux disease [Not Recovered/Not Resolved]
  - Haemorrhoidal haemorrhage [Recovered/Resolved]
  - Cardiomegaly [Not Recovered/Not Resolved]
  - Hypertension [Not Recovered/Not Resolved]
  - Atrial tachycardia [Not Recovered/Not Resolved]
  - Clubbing [Not Recovered/Not Resolved]
  - Anaemia [Not Recovered/Not Resolved]
  - Atrial fibrillation [Unknown]
  - Hypertonic bladder [Not Recovered/Not Resolved]

NARRATIVE: CASE EVENT DATE: 201311
